FAERS Safety Report 6185982-2 (Version None)
Quarter: 2009Q2

REPORT INFORMATION
  Report Type: 
  Country: None (occurrence: None)
  Receive Date: 20090511
  Receipt Date: 20090429
  Transmission Date: 20091009
  Serious: Yes (Other)
  Sender: FDA-Public Use
  Company Number: US-PFIZER INC-2005155304

PATIENT
  Sex: Female
  Weight: 55 kg

DRUGS (18)
  1. PROVERA [Suspect]
     Indication: HORMONE REPLACEMENT THERAPY
     Dosage: 10 MG, UNK
     Dates: start: 19950101, end: 19970101
  2. PROVERA [Suspect]
     Indication: MENOPAUSE
  3. ESTRING [Suspect]
     Indication: HORMONE REPLACEMENT THERAPY
     Dosage: 2 MG, UNK
     Dates: start: 20030101
  4. ESTRING [Suspect]
     Indication: MENOPAUSE
  5. MEDROXYPROGESTERONE ACETATE [Suspect]
     Indication: HORMONE REPLACEMENT THERAPY
     Dosage: 10 MG, UNK
     Dates: start: 19970101
  6. MEDROXYPROGESTERONE ACETATE [Suspect]
     Indication: MENOPAUSE
  7. PREMARIN [Suspect]
     Indication: HORMONE REPLACEMENT THERAPY
     Dosage: 0.625 MG, UNK
     Dates: start: 19950101, end: 19970101
  8. PREMARIN [Suspect]
     Indication: MENOPAUSE
  9. PREMPRO [Suspect]
     Indication: HORMONE REPLACEMENT THERAPY
     Dosage: 0.625/2.5 MG
     Dates: start: 19970101, end: 20020101
  10. PREMPRO [Suspect]
     Indication: MENOPAUSE
  11. CLIMARA [Suspect]
     Indication: HORMONE REPLACEMENT THERAPY
     Dosage: 0.05 MG, UNK
     Dates: start: 19970101
  12. CLIMARA [Suspect]
     Indication: MENOPAUSE
  13. ESTRACE [Suspect]
     Indication: MENOPAUSE
     Dosage: UNK
     Dates: start: 20020701, end: 20040101
  14. ESTRACE [Suspect]
     Indication: HORMONE REPLACEMENT THERAPY
  15. VAGIFEM [Suspect]
     Indication: MENOPAUSE
     Dosage: 25 UG, UNK
     Route: 048
     Dates: start: 20021101
  16. VAGIFEM [Suspect]
     Indication: HORMONE REPLACEMENT THERAPY
  17. PREMARIN [Suspect]
     Indication: MENOPAUSE
     Dosage: 0.625 MG, UNK
     Dates: start: 20001001, end: 20020101
  18. PREMARIN [Suspect]
     Indication: HORMONE REPLACEMENT THERAPY

REACTIONS (1)
  - BREAST CANCER FEMALE [None]
